FAERS Safety Report 5716057-1 (Version None)
Quarter: 2008Q2

REPORT INFORMATION
  Report Type: 
  Country: None (occurrence: None)
  Receive Date: 20080423
  Receipt Date: 20080423
  Transmission Date: 20081010
  Serious: Yes (Hospitalization)
  Sender: FDA-Public Use
  Company Number: None

PATIENT
  Age: 52 Year
  Sex: Female
  Weight: 62.1428 kg

DRUGS (2)
  1. PREMPRO [Suspect]
     Indication: HOT FLUSH
     Dosage: 1 TABLET DAILY PO
     Route: 048
     Dates: start: 20060701, end: 20080307
  2. PREMPRO [Suspect]
     Indication: MENOPAUSE
     Dosage: 1 TABLET DAILY PO
     Route: 048
     Dates: start: 20060701, end: 20080307

REACTIONS (2)
  - COLITIS ISCHAEMIC [None]
  - DRY EYE [None]
